FAERS Safety Report 19423737 (Version 1)
Quarter: 2021Q2

REPORT INFORMATION
  Report Type: Spontaneous
  Country: JP (occurrence: JP)
  Receive Date: 20210616
  Receipt Date: 20210616
  Transmission Date: 20210717
  Serious: Yes (Death, Other)
  Sender: FDA-Public Use
  Company Number: JP-AMGEN-JPNSP2021092218

PATIENT
  Age: 58 Year
  Sex: Male

DRUGS (1)
  1. BLINCYTO [Suspect]
     Active Substance: BLINATUMOMAB
     Indication: ACUTE LYMPHOCYTIC LEUKAEMIA REFRACTORY
     Dosage: UNK
     Route: 065

REACTIONS (5)
  - Blast cell count increased [Unknown]
  - Cord blood transplant therapy [Unknown]
  - Multiple organ dysfunction syndrome [Fatal]
  - Venoocclusive disease [Fatal]
  - Cytokine release syndrome [Unknown]
